FAERS Safety Report 7395469-7 (Version None)
Quarter: 2011Q2

REPORT INFORMATION
  Report Type: 
  Country: None (occurrence: None)
  Receive Date: 20110405
  Receipt Date: 20110331
  Transmission Date: 20111010
  Serious: Yes (Hospitalization, Other)
  Sender: FDA-Public Use
  Company Number: BR-ABBOTT-11P-020-0715983-00

PATIENT
  Sex: Female
  Weight: 60 kg

DRUGS (4)
  1. COMBINED FORMULA [Concomitant]
     Indication: MUSCULOSKELETAL PAIN
     Dosage: CHLOROQUINE 250MG/ RANITIDINE 150MG/ PREDNISONE 5MG/ KETOPROFEN 150MG
     Route: 048
     Dates: start: 20080101
  2. HUMIRA [Suspect]
     Route: 058
     Dates: start: 20110305
  3. LEVOTHYROXINE [Concomitant]
     Indication: THYROID DISORDER
     Dates: start: 20080101
  4. HUMIRA [Suspect]
     Indication: RHEUMATOID ARTHRITIS
     Route: 058
     Dates: end: 20110124

REACTIONS (2)
  - MUSCULAR WEAKNESS [None]
  - CARDIAC ARREST [None]
